FAERS Safety Report 14293178 (Version 1)
Quarter: 2017Q4

REPORT INFORMATION
  Report Type: Spontaneous
  Country: US (occurrence: US)
  Receive Date: 20171215
  Receipt Date: 20171215
  Transmission Date: 20180321
  Serious: No
  Sender: FDA-Public Use
  Company Number: US-BAYER-2017-235345

PATIENT
  Sex: Female
  Weight: 63 kg

DRUGS (4)
  1. MILK OF MAGNESIA ORIGINAL [Suspect]
     Active Substance: MAGNESIUM HYDROXIDE
     Indication: GASTROINTESTINAL DISORDER
     Dosage: UNK
     Route: 048
     Dates: start: 2015
  2. MIRALAX [Suspect]
     Active Substance: POLYETHYLENE GLYCOL 3350
     Route: 048
     Dates: start: 2013, end: 2013
  3. LIPITOR [Concomitant]
     Active Substance: ATORVASTATIN CALCIUM
  4. ADVIL [Concomitant]
     Active Substance: IBUPROFEN

REACTIONS (6)
  - Muscle spasms [None]
  - Change of bowel habit [Unknown]
  - Diarrhoea [Unknown]
  - Feeling abnormal [Unknown]
  - Abdominal distension [Unknown]
  - Product use issue [Unknown]
